FAERS Safety Report 9204882 (Version 1)
Quarter: 2013Q2

REPORT INFORMATION
  Report Type: Spontaneous
  Country: US (occurrence: None)
  Receive Date: 20130401
  Receipt Date: 20130401
  Transmission Date: 20140414
  Serious: Yes (Death, Hospitalization)
  Sender: FDA-Public Use
  Company Number: None

PATIENT
  Age: 6 Month
  Sex: Female
  Weight: 5.6 kg

DRUGS (9)
  1. CYTARABINE [Suspect]
     Dates: end: 20120617
  2. DEXAMETHASONE [Suspect]
     Dates: end: 20120913
  3. CYCLOPHOSPHAMIDE [Suspect]
     Dates: end: 20120827
  4. DAUNORUBICIN? [Suspect]
     Dates: end: 20120825
  5. PEG-L- ASPARAGINASE [Suspect]
     Dates: end: 20120827
  6. METHOTREXATE [Suspect]
     Dates: end: 20120724
  7. VINCRISTINE SULFATE [Suspect]
     Dates: end: 20120907
  8. HYDROCORTISONE [Concomitant]
  9. MITOXANTRONE [Concomitant]

REACTIONS (9)
  - Ventricular fibrillation [None]
  - Bacterial test positive [None]
  - Blood urea increased [None]
  - Blood bilirubin increased [None]
  - Blood glucose increased [None]
  - Acidosis [None]
  - Urine output decreased [None]
  - Hypoperfusion [None]
  - Pulse absent [None]
